FAERS Safety Report 14364808 (Version 2)
Quarter: 2018Q1

REPORT INFORMATION
  Report Type: Report from Study
  Country: US (occurrence: US)
  Receive Date: 20180108
  Receipt Date: 20180117
  Transmission Date: 20180509
  Serious: Yes (Death, Hospitalization)
  Sender: FDA-Public Use
  Company Number: US-ACTELION-A-NJ2017-163314

PATIENT
  Age: 71 Year
  Sex: Female

DRUGS (1)
  1. OPSUMIT [Suspect]
     Active Substance: MACITENTAN
     Indication: PULMONARY HYPERTENSION
     Dosage: 10 MG, QD
     Route: 048
     Dates: start: 20170508

REACTIONS (6)
  - Hypoxia [Fatal]
  - General physical health deterioration [Unknown]
  - Right ventricular failure [Fatal]
  - Tachycardia [Fatal]
  - Disease progression [Fatal]
  - Dyspnoea [Fatal]
